FAERS Safety Report 10377654 (Version 1)
Quarter: 2014Q3

REPORT INFORMATION
  Report Type: Spontaneous
  Country: IT (occurrence: IT)
  Receive Date: 20140812
  Receipt Date: 20140812
  Transmission Date: 20150326
  Serious: Yes (Other)
  Sender: FDA-Public Use
  Company Number: PHHY2014IT097266

PATIENT
  Age: 80 Year
  Sex: Female

DRUGS (6)
  1. DAPAROX (PAROXETINE) [Concomitant]
     Indication: SOCIAL PHOBIA
     Dosage: 20 MG, UNK
     Route: 048
  2. ACETYLSALICYLIC ACID [Concomitant]
     Active Substance: ASPIRIN
     Indication: CORONARY ARTERY OCCLUSION
     Dosage: 300 MG, UNK
     Route: 048
  3. CARNITENE//LEVOCARNITINE [Concomitant]
     Dosage: 2 G/10 ML
     Route: 048
  4. TRIATEC [Concomitant]
     Active Substance: RAMIPRIL
     Dosage: 10 MG, UNK
  5. OMEPRAZEN [Concomitant]
     Active Substance: OMEPRAZOLE
     Dosage: 20 MG, UNK
  6. EXELON PATCH [Suspect]
     Active Substance: RIVASTIGMINE
     Indication: DEMENTIA ALZHEIMER^S TYPE
     Dosage: 4.6MG/24 HOURS (9 MG, DAILY)
     Route: 062
     Dates: start: 20140429, end: 20140501

REACTIONS (2)
  - Laryngeal oedema [Recovered/Resolved]
  - Dysphagia [Recovered/Resolved]

NARRATIVE: CASE EVENT DATE: 20140501
